FAERS Safety Report 4358367-9 (Version None)
Quarter: 2004Q2

REPORT INFORMATION
  Report Type: 
  Country: None (occurrence: None)
  Receive Date: 20040512
  Receipt Date: 20040512
  Transmission Date: 20050107
  Serious: Yes (Death, Life-Threatening)
  Sender: FDA-Public Use
  Company Number: None

PATIENT
  Age: 72 Year
  Sex: Male
  Weight: 86.1834 kg

DRUGS (4)
  1. VFEND [Suspect]
     Indication: FUNGAL INFECTION
     Dosage: 520 MG Q12 HOURS IV
     Route: 042
     Dates: start: 20040302, end: 20040303
  2. VFEND [Suspect]
     Indication: LUNG INFECTION
     Dosage: 520 MG Q12 HOURS IV
     Route: 042
     Dates: start: 20040302, end: 20040303
  3. OMNIPAQUE 300 [Suspect]
     Indication: COMPUTERISED TOMOGRAM
     Dosage: 100 ML IV X 1
     Route: 042
     Dates: start: 20040226
  4. VFEND [Suspect]

REACTIONS (9)
  - BETA HAEMOLYTIC STREPTOCOCCAL INFECTION [None]
  - DISORIENTATION [None]
  - EMBOLISM [None]
  - EPISTAXIS [None]
  - FUNGAL INFECTION [None]
  - HYPOXIA [None]
  - PNEUMONIA [None]
  - RENAL FAILURE ACUTE [None]
  - STAPHYLOCOCCAL INFECTION [None]
